FAERS Safety Report 6917042-4 (Version None)
Quarter: 2010Q3

REPORT INFORMATION
  Report Type: 
  Country: None (occurrence: None)
  Receive Date: 20100810
  Receipt Date: 20100804
  Transmission Date: 20110219
  Serious: Yes (Hospitalization)
  Sender: FDA-Public Use
  Company Number: A0874025A

PATIENT
  Age: 66 Year
  Sex: Male

DRUGS (15)
  1. ADVAIR DISKUS 100/50 [Suspect]
     Indication: CHRONIC OBSTRUCTIVE PULMONARY DISEASE
     Dosage: 1PUFF TWICE PER DAY
     Route: 055
     Dates: start: 20060101
  2. PREDNISONE [Concomitant]
  3. PROVENTIL [Concomitant]
  4. SPIRIVA [Concomitant]
  5. OMEPRAZOLE [Concomitant]
  6. METFORMIN HCL [Concomitant]
  7. LEVOTHYROXINE [Concomitant]
  8. HYDROCHLOROTHIAZIDE [Concomitant]
  9. FINASTERIDE [Concomitant]
  10. LISINOPRIL [Concomitant]
  11. SIMVASTATIN [Concomitant]
  12. ASPIRIN [Concomitant]
  13. GLYBURIDE [Concomitant]
  14. ASCORBIC ACID [Concomitant]
  15. LIQUID POTASSIUM [Concomitant]

REACTIONS (6)
  - BLOOD POTASSIUM DECREASED [None]
  - CATARACT [None]
  - HEART RATE INCREASED [None]
  - HYPOTENSION [None]
  - INCREASED UPPER AIRWAY SECRETION [None]
  - PNEUMONIA [None]
